FAERS Safety Report 19217261 (Version 6)
Quarter: 2025Q2

REPORT INFORMATION
  Report Type: Spontaneous
  Country: JP (occurrence: JP)
  Receive Date: 20210505
  Receipt Date: 20250509
  Transmission Date: 20250716
  Serious: Yes (Death, Hospitalization, Other)
  Sender: EXELIXIS
  Company Number: JP-TAKEDA-2021TJP020528

PATIENT
  Age: 76 Year
  Sex: Male
  Weight: 68.8 kg

DRUGS (11)
  1. CABOMETYX [Suspect]
     Active Substance: CABOZANTINIB S-MALATE
     Indication: Metastatic renal cell carcinoma
     Dosage: 40 MG, QD
     Route: 048
     Dates: start: 20210326, end: 20210401
  2. OPDIVO [Suspect]
     Active Substance: NIVOLUMAB
     Indication: Metastatic renal cell carcinoma
     Route: 041
     Dates: start: 20201223, end: 20201223
  3. OPDIVO [Suspect]
     Active Substance: NIVOLUMAB
     Route: 041
     Dates: start: 20210115, end: 20210115
  4. OPDIVO [Suspect]
     Active Substance: NIVOLUMAB
     Route: 041
     Dates: start: 20210205, end: 20210205
  5. OPDIVO [Suspect]
     Active Substance: NIVOLUMAB
     Route: 041
     Dates: start: 20210226, end: 20210226
  6. YERVOY [Suspect]
     Active Substance: IPILIMUMAB
     Indication: Metastatic renal cell carcinoma
     Dosage: UNK UNK, Q3WEEKS
     Route: 041
     Dates: start: 20201223, end: 20201223
  7. YERVOY [Suspect]
     Active Substance: IPILIMUMAB
     Route: 041
     Dates: start: 20210115, end: 20210115
  8. YERVOY [Suspect]
     Active Substance: IPILIMUMAB
     Route: 041
     Dates: start: 20210205, end: 20210205
  9. YERVOY [Suspect]
     Active Substance: IPILIMUMAB
     Route: 041
     Dates: start: 20210226, end: 20210226
  10. TAMSULOSIN HYDROCHLORIDE [Concomitant]
     Active Substance: TAMSULOSIN HYDROCHLORIDE
     Indication: Product used for unknown indication
     Dosage: 0.2 MG, QD
     Route: 048
     Dates: end: 20210408
  11. EDOXABAN TOSYLATE [Concomitant]
     Active Substance: EDOXABAN TOSYLATE
     Indication: Product used for unknown indication
     Dosage: 30 MG, QD
     Route: 048
     Dates: start: 20201121, end: 20210408

REACTIONS (14)
  - Gastrointestinal mucosal necrosis [Fatal]
  - Portal venous gas [Fatal]
  - Pneumonia [Recovering/Resolving]
  - Adrenal insufficiency [Not Recovered/Not Resolved]
  - Drug-induced liver injury [Recovered/Resolved]
  - Malignant neoplasm progression [Unknown]
  - Insomnia [Not Recovered/Not Resolved]
  - Drug eruption [Recovering/Resolving]
  - Hyponatraemia [Not Recovered/Not Resolved]
  - Depression [Not Recovered/Not Resolved]
  - Rash [Recovering/Resolving]
  - Decreased appetite [Not Recovered/Not Resolved]
  - Aspartate aminotransferase increased [Recovered/Resolved]
  - Alanine aminotransferase increased [Recovered/Resolved]

NARRATIVE: CASE EVENT DATE: 20201223
